FAERS Safety Report 9651138 (Version 1)
Quarter: 2013Q4

REPORT INFORMATION
  Report Type: Spontaneous
  Country: US (occurrence: US)
  Receive Date: 20131029
  Receipt Date: 20131029
  Transmission Date: 20140711
  Serious: No
  Sender: FDA-Public Use
  Company Number: US-PFIZER INC-2013305840

PATIENT
  Age: 64 Year
  Sex: Female

DRUGS (1)
  1. INLYTA [Suspect]
     Indication: LUNG NEOPLASM MALIGNANT
     Dosage: 5 MG, 2X/DAY (1 TAB BID)
     Dates: start: 201209

REACTIONS (3)
  - Off label use [Unknown]
  - Blood pressure increased [Unknown]
  - Neuropathy peripheral [Unknown]
